FAERS Safety Report 9607623 (Version 11)
Quarter: 2014Q2

REPORT INFORMATION
  Report Type: Spontaneous
  Country: GB (occurrence: GB)
  Receive Date: 20131009
  Receipt Date: 20140615
  Transmission Date: 20141212
  Serious: Yes (Other)
  Sender: FDA-Public Use
  Company Number: PHFR2013GB005304

PATIENT
  Age: 54 Year
  Sex: Male

DRUGS (3)
  1. CLOZARIL [Suspect]
     Indication: SCHIZOPHRENIA
     Dosage: UNK
  2. CLOZARIL [Suspect]
     Dosage: 150 (UNIT UNSPECIFIED)
     Route: 048
     Dates: start: 20130830
  3. CLOZARIL [Suspect]
     Dosage: 225 MG, DAILY
     Route: 048
     Dates: start: 20130901

REACTIONS (14)
  - Hydronephrosis [Not Recovered/Not Resolved]
  - Kidney infection [Recovered/Resolved]
  - Back pain [Recovered/Resolved]
  - Subacute endocarditis [Recovered/Resolved]
  - Pyrexia [Recovered/Resolved]
  - Chest discomfort [Recovered/Resolved]
  - Anaemia [Not Recovered/Not Resolved]
  - Renal impairment [Not Recovered/Not Resolved]
  - Blood creatinine increased [Not Recovered/Not Resolved]
  - Glomerular filtration rate decreased [Not Recovered/Not Resolved]
  - Hypertension [Recovering/Resolving]
  - Malaise [Unknown]
  - Neutrophil count increased [Recovering/Resolving]
  - Vomiting [Recovered/Resolved]
